FAERS Safety Report 6156771-X (Version None)
Quarter: 2009Q2

REPORT INFORMATION
  Report Type: 
  Country: None (occurrence: None)
  Receive Date: 20090416
  Receipt Date: 20090407
  Transmission Date: 20091009
  Serious: Yes (Other)
  Sender: FDA-Public Use
  Company Number: PHHY2009CA12563

PATIENT
  Sex: Female

DRUGS (6)
  1. EXELON [Suspect]
     Dosage: 12 MG/DAY
     Route: 048
  2. EXELON [Suspect]
     Dosage: UNK
  3. SYNTHROID [Concomitant]
  4. LOPRESOR [Concomitant]
  5. CALCIUM CARBONATE W/VITAMIN D NOS [Concomitant]
  6. FERROUS SULFATE TAB [Concomitant]

REACTIONS (1)
  - ABNORMAL BEHAVIOUR [None]
